FAERS Safety Report 18399320 (Version 2)
Quarter: 2021Q4

REPORT INFORMATION
  Report Type: Spontaneous
  Country: US (occurrence: US)
  Receive Date: 20201019
  Receipt Date: 20211015
  Transmission Date: 20220304
  Serious: Yes (Other)
  Sender: FDA-Public Use
  Company Number: US-SAARTEMIS-SAC202010140430

PATIENT
  Age: 80 Year
  Sex: Male

DRUGS (1)
  1. ZANTAC [Suspect]
     Active Substance: RANITIDINE HYDROCHLORIDE
     Indication: Dyspepsia
     Dosage: 150 MG, QD
     Dates: start: 200905, end: 201507

REACTIONS (3)
  - Colorectal cancer [Unknown]
  - Oesophageal carcinoma [Unknown]
  - Thyroid cancer stage II [Recovering/Resolving]

NARRATIVE: CASE EVENT DATE: 20050101
